FAERS Safety Report 9474746 (Version 3)
Quarter: 2013Q3

REPORT INFORMATION
  Report Type: Spontaneous
  Country: IT (occurrence: IT)
  Receive Date: 20130823
  Receipt Date: 20130901
  Transmission Date: 20140515
  Serious: No
  Sender: FDA-Public Use
  Company Number: IT-PFIZER INC-2013029529

PATIENT
  Age: 43 Year
  Sex: Female
  Weight: 69 kg

DRUGS (8)
  1. CELEBREX [Suspect]
     Indication: RHEUMATOID ARTHRITIS
     Dosage: 200 MG, 1X/DAY
     Route: 048
     Dates: start: 20121011, end: 20121012
  2. METHOTREXATE [Concomitant]
     Dosage: UNK
     Route: 065
  3. FOSAVANCE [Concomitant]
     Route: 065
  4. XANAX [Concomitant]
     Route: 065
  5. DELTACORTENE [Concomitant]
     Route: 065
  6. SYMBICORT [Concomitant]
     Route: 065
  7. FOLINA [Concomitant]
     Route: 065
  8. DIBASE [Concomitant]
     Route: 065

REACTIONS (1)
  - Acute generalised exanthematous pustulosis [Recovering/Resolving]
